FAERS Safety Report 5702625-X (Version None)
Quarter: 2008Q2

REPORT INFORMATION
  Report Type: 
  Country: None (occurrence: None)
  Receive Date: 20080411
  Receipt Date: 20080331
  Transmission Date: 20081010
  Serious: Yes (Hospitalization)
  Sender: FDA-Public Use
  Company Number: TR-ELI_LILLY_AND_COMPANY-TR200804001892

PATIENT

DRUGS (2)
  1. HUMALOG MIX 75/25 [Suspect]
     Dosage: UNK, UNK
     Route: 058
     Dates: start: 20070701
  2. INSULIN [Concomitant]
     Dates: start: 20040301

REACTIONS (2)
  - BLOOD CREATININE INCREASED [None]
  - BLOOD UREA INCREASED [None]
